FAERS Safety Report 8048182-7 (Version None)
Quarter: 2012Q1

REPORT INFORMATION
  Report Type: 
  Country: None (occurrence: None)
  Receive Date: 20120110
  Receipt Date: 20111115
  Transmission Date: 20120608
  Serious: Yes (Hospitalization)
  Sender: FDA-Public Use
  Company Number: CHER20110010

PATIENT
  Age: 30 Year
  Sex: Female
  Weight: 74.8435 kg

DRUGS (2)
  1. CHERATUSSIN AC (CODEINE, GUAIFENESIN) (SYRUP) [Suspect]
     Indication: COUGH
     Dosage: EVERY FOUR TO SIX HOURS AS NEEDED, ORAL
     Route: 048
     Dates: start: 20111110, end: 20111111
  2. SINGULAIR [Suspect]
     Indication: COUGH
     Dosage: 10 MG, ORAL
     Route: 048
     Dates: start: 20111110

REACTIONS (2)
  - PALPITATIONS [None]
  - CHEST DISCOMFORT [None]
